FAERS Safety Report 6743586-4 (Version None)
Quarter: 2010Q2

REPORT INFORMATION
  Report Type: 
  Country: None (occurrence: None)
  Receive Date: 20100525
  Receipt Date: 20100518
  Transmission Date: 20101027
  Serious: Yes (Other)
  Sender: FDA-Public Use
  Company Number: TOR 2010-0043

PATIENT
  Age: 78 Year
  Sex: Female

DRUGS (9)
  1. FARESTON [Suspect]
     Indication: BREAST CANCER STAGE IV
     Dosage: 120 MG, ORAL
     Route: 048
     Dates: start: 20070425, end: 20071113
  2. TAXOL [Concomitant]
  3. KYTRIL [Concomitant]
  4. DECADRON [Concomitant]
  5. FAMOTIDINE [Concomitant]
  6. RESTAMIN [Concomitant]
  7. MAGMITT [Concomitant]
  8. LASIX [Concomitant]
  9. NEU-UP [Concomitant]

REACTIONS (3)
  - CONDITION AGGRAVATED [None]
  - CONSTIPATION [None]
  - UTERINE LEIOMYOMA [None]
